FAERS Safety Report 7328472-3 (Version None)
Quarter: 2011Q1

REPORT INFORMATION
  Report Type: 
  Country: None (occurrence: None)
  Receive Date: 20110303
  Receipt Date: 20110228
  Transmission Date: 20110831
  Serious: Yes (Hospitalization, Other)
  Sender: FDA-Public Use
  Company Number: JP-PFIZER INC-2011024326

PATIENT
  Age: 61 Year
  Sex: Male
  Weight: 101.5 kg

DRUGS (6)
  1. CADUET [Suspect]
     Indication: HYPERLIPIDAEMIA
     Dosage: UNK
     Route: 048
     Dates: start: 20101201, end: 20110106
  2. AMARYL [Concomitant]
     Indication: DIABETES MELLITUS
     Dosage: 3 MG, 1X/DAY
     Route: 048
     Dates: start: 20050111
  3. ACTOS [Concomitant]
     Indication: DIABETES MELLITUS
     Dosage: 15 MG, 3X/DAY
     Route: 048
     Dates: start: 20050111
  4. MELBIN [Concomitant]
     Indication: DIABETES MELLITUS
     Dosage: 750 MG, A DAY
     Route: 048
     Dates: start: 20050111
  5. SITAGLIPTIN PHOSPHATE [Concomitant]
     Indication: DIABETES MELLITUS
     Dosage: 100 MG, 1X/DAY
     Route: 048
     Dates: start: 20100310
  6. KINEDAK [Concomitant]
     Indication: NEUROPATHY PERIPHERAL
     Dosage: 50 MG, 3X/DAY
     Route: 048
     Dates: start: 20100310

REACTIONS (7)
  - MYOGLOBIN URINE PRESENT [None]
  - ASTHENIA [None]
  - DIARRHOEA [None]
  - MYOGLOBIN BLOOD INCREASED [None]
  - BLOOD LACTATE DEHYDROGENASE INCREASED [None]
  - RHABDOMYOLYSIS [None]
  - BLOOD CREATINE PHOSPHOKINASE INCREASED [None]
